FAERS Safety Report 9275975 (Version 1)
Quarter: 2012Q4

REPORT INFORMATION
  Report Type: Spontaneous
  Country: US (occurrence: None)
  Receive Date: 20121109
  Receipt Date: 20121109
  Transmission Date: 20130627
  Serious: Yes (Hospitalization, Other)
  Sender: FDA-Public Use
  Company Number: 2011S1000746

PATIENT
  Age: 69 Year
  Sex: Male
  Weight: 133 kg

DRUGS (6)
  1. CUBICIN [Suspect]
     Indication: DRUG USE FOR UNKNOWN INDICATION
     Route: 042
  2. SIMVASTATIN [Suspect]
     Indication: DRUG USE FOR UNKNOWN INDICATION
  3. LEVOFLOXACIN [Concomitant]
  4. VANCOMYCIN [Concomitant]
  5. GENTAMICIN [Concomitant]
  6. CEFEPIME [Concomitant]

REACTIONS (4)
  - Rhabdomyolysis [None]
  - Potentiating drug interaction [None]
  - Blood potassium increased [None]
  - Blood creatinine increased [None]
